FAERS Safety Report 7604775-X (Version None)
Quarter: 2011Q3

REPORT INFORMATION
  Report Type: 
  Country: None (occurrence: None)
  Receive Date: 20110712
  Receipt Date: 20110630
  Transmission Date: 20111222
  Serious: Yes (Other)
  Sender: FDA-Public Use
  Company Number: PHHY2011DE59011

PATIENT
  Age: 53 Year
  Sex: Female

DRUGS (4)
  1. AREDIA [Suspect]
     Route: 042
     Dates: start: 20020801, end: 20020901
  2. CHEMOTHERAPEUTICS [Concomitant]
     Dosage: UNK
  3. CORTISONE ACETATE [Concomitant]
  4. ZOMETA [Suspect]
     Route: 042

REACTIONS (3)
  - ORAL DYSAESTHESIA [None]
  - JAW DISORDER [None]
  - OSTEONECROSIS OF JAW [None]
